FAERS Safety Report 10775868 (Version 1)
Quarter: 2015Q1

REPORT INFORMATION
  Report Type: Spontaneous
  Country: US (occurrence: None)
  Receive Date: 20150205
  Receipt Date: 20150205
  Transmission Date: 20150721
  Serious: Yes (Disabling)
  Sender: FDA-Public Use
  Company Number: None

PATIENT
  Age: 34 Year
  Sex: Female
  Weight: 62.14 kg

DRUGS (1)
  1. MIRENA [Suspect]
     Active Substance: LEVONORGESTREL

REACTIONS (32)
  - Impaired work ability [None]
  - Amnesia [None]
  - Loss of consciousness [None]
  - Night sweats [None]
  - Dizziness [None]
  - Back pain [None]
  - Myalgia [None]
  - Social problem [None]
  - Depression [None]
  - Hot flush [None]
  - Diarrhoea [None]
  - Muscle spasms [None]
  - Headache [None]
  - Acne [None]
  - Feeling abnormal [None]
  - Asthenia [None]
  - Abnormal behaviour [None]
  - Mood swings [None]
  - Insomnia [None]
  - Gingival bleeding [None]
  - Weight increased [None]
  - Abdominal distension [None]
  - Skin odour abnormal [None]
  - Libido decreased [None]
  - Disturbance in attention [None]
  - Apathy [None]
  - Dyspepsia [None]
  - Anxiety [None]
  - Fatigue [None]
  - Quality of life decreased [None]
  - Polymenorrhoea [None]
  - Hair growth abnormal [None]

NARRATIVE: CASE EVENT DATE: 20150204
